FAERS Safety Report 7934583-1 (Version None)
Quarter: 2011Q4

REPORT INFORMATION
  Report Type: 
  Country: None (occurrence: None)
  Receive Date: 20111122
  Receipt Date: 20110830
  Transmission Date: 20120403
  Serious: No
  Sender: FDA-Public Use
  Company Number: US-BAYER-2011-079799

PATIENT
  Age: 64 Year
  Sex: Male

DRUGS (1)
  1. LEVITRA [Suspect]
     Indication: ERECTILE DYSFUNCTION
     Dosage: UNK
     Route: 048
     Dates: start: 20100101, end: 20100101

REACTIONS (4)
  - SKIN LESION [None]
  - PERINEAL PAIN [None]
  - HOT FLUSH [None]
  - HERPES ZOSTER [None]
